FAERS Safety Report 7499762-9 (Version None)
Quarter: 2011Q2

REPORT INFORMATION
  Report Type: 
  Country: None (occurrence: None)
  Receive Date: 20110524
  Receipt Date: 20110225
  Transmission Date: 20111010
  Serious: No
  Sender: FDA-Public Use
  Company Number: US-NOVEN-11US001876

PATIENT
  Sex: Female

DRUGS (2)
  1. DAYTRANA [Suspect]
     Indication: ATTENTION DEFICIT/HYPERACTIVITY DISORDER
     Dosage: 10 MG QD
     Route: 062
     Dates: start: 20110101, end: 20110201
  2. DAYTRANA [Suspect]
     Dosage: 1 1/2 10 MG PATCHES
     Dates: start: 20110201

REACTIONS (5)
  - WRONG TECHNIQUE IN DRUG USAGE PROCESS [None]
  - APPLICATION SITE ERYTHEMA [None]
  - DRUG INEFFECTIVE [None]
  - APPLICATION SITE IRRITATION [None]
  - DRUG PRESCRIBING ERROR [None]
